FAERS Safety Report 16473902 (Version 7)
Quarter: 2019Q4

REPORT INFORMATION
  Report Type: Spontaneous
  Country: MX (occurrence: MX)
  Receive Date: 20190625
  Receipt Date: 20191007
  Transmission Date: 20200122
  Serious: Yes (Hospitalization, Other)
  Sender: FDA-Public Use
  Company Number: MX-TOPROL ACQUISITION LLC-2019-TOP-000446

PATIENT
  Age: 70 Year
  Sex: Female
  Weight: 65 kg

DRUGS (10)
  1. ULSEN                              /00661201/ [Concomitant]
     Indication: GASTRITIS
     Dosage: 40 MG, QD
     Route: 048
     Dates: start: 20190610, end: 20190715
  2. SPIRONOLACTONE. [Concomitant]
     Active Substance: SPIRONOLACTONE
     Dosage: 26 MG 1 TABLET EVERY 24 HOURS
     Dates: start: 20190912
  3. METOPROLOL SUCCINATE. [Suspect]
     Active Substance: METOPROLOL SUCCINATE
     Indication: HYPERTENSION
     Dosage: 95 MG, QD
     Route: 048
     Dates: start: 201806
  4. AMLODIPINE+TELMISARTAN [Concomitant]
     Indication: HYPERTENSION
     Dosage: 80/5 MG 1 TABLET EVERY 24 HOURS, 80 MG DAILY
     Route: 048
     Dates: start: 2018
  5. PHARMATON                          /00124801/ [Concomitant]
     Indication: PRODUCT USED FOR UNKNOWN INDICATION
     Dosage: UNK
     Route: 048
     Dates: start: 20181221
  6. XIGDUO XR [Interacting]
     Active Substance: DAPAGLIFLOZIN PROPANEDIOL\METFORMIN HYDROCHLORIDE
     Indication: TYPE 2 DIABETES MELLITUS
     Dosage: 10/1000 MG, 1 TABLET EVERY 24 HOURS, IN THE MORNING, QD
     Route: 048
     Dates: start: 20190612
  7. MINITRAN [Concomitant]
     Active Substance: NITROGLYCERIN
     Indication: CARDIAC DISORDER
     Dosage: 18 MG, QD
     Route: 003
     Dates: start: 20190610, end: 20190715
  8. LASIX [Interacting]
     Active Substance: FUROSEMIDE
     Indication: FLUID RETENTION
     Dosage: 40 MG Q12H
     Route: 048
     Dates: start: 20190610
  9. CALTRATE [Concomitant]
     Active Substance: CALCIUM CARBONATE
     Indication: PRODUCT USED FOR UNKNOWN INDICATION
     Dosage: UNK
     Route: 048
     Dates: start: 20181221
  10. AMLODIPINE+TELMISARTAN [Concomitant]
     Dosage: 80 MG, QD
     Route: 048
     Dates: start: 2018

REACTIONS (15)
  - Productive cough [Not Recovered/Not Resolved]
  - Cardiac disorder [Not Recovered/Not Resolved]
  - Blindness unilateral [Not Recovered/Not Resolved]
  - Dysphagia [Recovered/Resolved]
  - Pollakiuria [Recovering/Resolving]
  - Headache [Recovered/Resolved]
  - Hypertension [Not Recovered/Not Resolved]
  - Constipation [Not Recovered/Not Resolved]
  - Drug interaction [Not Recovered/Not Resolved]
  - Chest discomfort [Recovered/Resolved]
  - Gastritis [Not Recovered/Not Resolved]
  - Blood glucose increased [Recovered/Resolved]
  - Decreased appetite [Recovered/Resolved]
  - Pulmonary congestion [Not Recovered/Not Resolved]
  - Diarrhoea [Not Recovered/Not Resolved]

NARRATIVE: CASE EVENT DATE: 2019
